FAERS Safety Report 4955068-0 (Version None)
Quarter: 2006Q1

REPORT INFORMATION
  Report Type: 
  Country: None (occurrence: None)
  Receive Date: 20060322
  Receipt Date: 20060302
  Transmission Date: 20060701
  Serious: Yes (Hospitalization)
  Sender: FDA-Public Use
  Company Number: USA020413485

PATIENT
  Age: 57 Year
  Sex: Female

DRUGS (6)
  1. HUMALOG MIX 75/25 [Suspect]
     Indication: DIABETES MELLITUS
     Dates: start: 20030101, end: 20060117
  2. HUMALOG [Suspect]
     Indication: DIABETES MELLITUS
     Dosage: SEE IMAGE
     Dates: start: 20060117
  3. HUMALOG [Suspect]
     Indication: DIABETES MELLITUS
     Dosage: SEE IMAGE
     Dates: start: 20060207
  4. HUMULIN N [Suspect]
     Indication: DIABETES MELLITUS
     Dates: start: 20011101, end: 20030101
  5. HUMULIN 70/30 [Suspect]
  6. LANTUS [Concomitant]

REACTIONS (23)
  - BLOOD GLUCOSE DECREASED [None]
  - BLOOD GLUCOSE INCREASED [None]
  - BLOODY DISCHARGE [None]
  - BREAST DISCHARGE [None]
  - BREAST INFECTION [None]
  - BREAST INJURY [None]
  - CARDIAC FAILURE CONGESTIVE [None]
  - CHEST PAIN [None]
  - CORONARY ARTERY OCCLUSION [None]
  - GLYCOSYLATED HAEMOGLOBIN INCREASED [None]
  - HAEMATOMA [None]
  - HYPOAESTHESIA [None]
  - LIMB INJURY [None]
  - LOCALISED INFECTION [None]
  - MALAISE [None]
  - OPERATIVE HAEMORRHAGE [None]
  - POSTOPERATIVE INFECTION [None]
  - PROCEDURAL COMPLICATION [None]
  - RETINOPATHY [None]
  - SOMNOLENCE [None]
  - THYROID DISORDER [None]
  - VISION BLURRED [None]
  - WEIGHT INCREASED [None]
